FAERS Safety Report 21484357 (Version 2)
Quarter: 2023Q1

REPORT INFORMATION
  Report Type: Spontaneous
  Country: US (occurrence: US)
  Receive Date: 20221020
  Receipt Date: 20230228
  Transmission Date: 20230418
  Serious: No
  Sender: FDA-Public Use
  Company Number: US-UCBSA-2022052034

PATIENT
  Age: 4 Year
  Sex: Male

DRUGS (4)
  1. FINTEPLA [Suspect]
     Active Substance: FENFLURAMINE
     Indication: Product used for unknown indication
     Dosage: TITRATION DOSE
     Route: 048
     Dates: start: 20220726, end: 20221213
  2. FINTEPLA [Suspect]
     Active Substance: FENFLURAMINE
     Dosage: 2.7 MILLILITER, 2X/DAY (BID)
     Route: 048
     Dates: start: 2022
  3. FINTEPLA [Suspect]
     Active Substance: FENFLURAMINE
     Dosage: 2.7 MILLILITER, 2X/DAY (BID)
     Route: 048
     Dates: start: 2022
  4. FINTEPLA [Suspect]
     Active Substance: FENFLURAMINE
     Dosage: 2.7 MILLILITER, 2X/DAY (BID)
     Dates: end: 20221213

REACTIONS (5)
  - Feeling drunk [Recovered/Resolved]
  - Diarrhoea [Not Recovered/Not Resolved]
  - Product availability issue [Unknown]
  - Therapy interrupted [Unknown]
  - Drug ineffective [Unknown]

NARRATIVE: CASE EVENT DATE: 20220820
